FAERS Safety Report 7564088-1 (Version None)
Quarter: 2011Q2

REPORT INFORMATION
  Report Type: 
  Country: None (occurrence: None)
  Receive Date: 20110622
  Receipt Date: 20110614
  Transmission Date: 20111010
  Serious: Yes (Hospitalization, Other)
  Sender: FDA-Public Use
  Company Number: US-PFIZER INC-2011133407

PATIENT
  Sex: Male
  Weight: 129.25 kg

DRUGS (7)
  1. TOPAMAX [Suspect]
     Indication: HEADACHE
  2. TENORMIN [Concomitant]
     Dosage: UNK
  3. PERCOCET [Concomitant]
     Dosage: UNK
  4. SERTRALINE HYDROCHLORIDE [Suspect]
     Indication: DEPRESSION
     Dosage: 50 MG, 1X/DAY
     Route: 048
     Dates: start: 20060101
  5. TOPAMAX [Suspect]
     Indication: MIGRAINE
     Dosage: UNK
  6. IBUPROFEN [Suspect]
     Indication: PAIN
     Dosage: 1600 MG, UNK
  7. XANAX [Concomitant]
     Dosage: UNK

REACTIONS (17)
  - SUICIDAL IDEATION [None]
  - BACTERIAL INFECTION [None]
  - HEADACHE [None]
  - CRYING [None]
  - INFECTION PARASITIC [None]
  - NEPHROLITHIASIS [None]
  - KIDNEY INFECTION [None]
  - SEPSIS [None]
  - GASTRIC PERFORATION [None]
  - NIGHTMARE [None]
  - POST-TRAUMATIC STRESS DISORDER [None]
  - SPINAL DISORDER [None]
  - CALCULUS URETHRAL [None]
  - OBSTRUCTIVE UROPATHY [None]
  - NECK PAIN [None]
  - EMOTIONAL DISORDER [None]
  - HYPOAESTHESIA [None]
